FAERS Safety Report 6173329-7 (Version None)
Quarter: 2009Q2

REPORT INFORMATION
  Report Type: 
  Country: None (occurrence: None)
  Receive Date: 20090428
  Receipt Date: 20090413
  Transmission Date: 20091009
  Serious: Yes (Death, Hospitalization)
  Sender: FDA-Public Use
  Company Number: 2009001136

PATIENT
  Age: 65 Year
  Sex: Male

DRUGS (14)
  1. ERLOTINIB (ERLOTINIB) (TABLET) (ERLOTINIB) [Suspect]
     Indication: NON-SMALL CELL LUNG CANCER
     Dosage: (150 MG),ORAL
     Route: 048
     Dates: start: 20080208, end: 20080320
  2. SIMVASTATIN [Concomitant]
  3. SPIRONOLACTONE [Concomitant]
  4. DILTIAZEM HYDROCHLORIDE [Concomitant]
  5. MAXIDEX [Concomitant]
  6. ACETAZOLAMIDE [Concomitant]
  7. INDAPAMIDE [Concomitant]
  8. DICLOFENAC (DICLOFENAC) [Concomitant]
  9. CETIRIZINE [Concomitant]
  10. CANDESARTAN CILEXETIL [Concomitant]
  11. ATROPINE SULFATE [Concomitant]
  12. ASPIRIN [Concomitant]
  13. LANTANOPROST EYE DROPS (LATANOPROST) [Concomitant]
  14. BRIMONIDINE (BRIMONIDINE) [Concomitant]

REACTIONS (7)
  - CHEST PAIN [None]
  - DIZZINESS [None]
  - FATIGUE [None]
  - GAIT DISTURBANCE [None]
  - HYPOKALAEMIA [None]
  - HYPONATRAEMIA [None]
  - PNEUMONIA [None]
